FAERS Safety Report 4719566-7 (Version None)
Quarter: 2005Q3

REPORT INFORMATION
  Report Type: 
  Country: None (occurrence: None)
  Receive Date: 20050721
  Receipt Date: 20050712
  Transmission Date: 20060218
  Serious: Yes (Hospitalization)
  Sender: FDA-Public Use
  Company Number: US-BRISTOL-MYERS SQUIBB COMPANY-13039862

PATIENT
  Age: 17 Year
  Sex: Female

DRUGS (6)
  1. BLINDED: ARIPIPRAZOLE [Suspect]
     Indication: SCHIZOPHRENIA
     Route: 048
     Dates: start: 20050331
  2. BLINDED: PLACEBO [Suspect]
     Indication: SCHIZOPHRENIA
     Route: 048
     Dates: start: 20050331
  3. OMEPRAZOLE [Concomitant]
     Indication: GASTROOESOPHAGEAL REFLUX DISEASE
     Route: 048
     Dates: start: 20040901
  4. CETIRIZINE HCL [Concomitant]
     Indication: SEASONAL ALLERGY
     Route: 048
     Dates: start: 20030101
  5. ALBUTEROL [Concomitant]
     Indication: ASTHMA
     Route: 055
     Dates: start: 20040101
  6. IBUPROFEN [Concomitant]
     Indication: PAIN
     Dates: start: 20030101

REACTIONS (1)
  - DEEP VEIN THROMBOSIS [None]
